FAERS Safety Report 7570907-5 (Version None)
Quarter: 2011Q2

REPORT INFORMATION
  Report Type: 
  Country: None (occurrence: None)
  Receive Date: 20110622
  Receipt Date: 20110622
  Transmission Date: 20111010
  Serious: No
  Sender: FDA-Public Use
  Company Number: None

PATIENT
  Sex: Female
  Weight: 61.2356 kg

DRUGS (1)
  1. RECLAST [Suspect]
     Indication: BONE DENSITY ABNORMAL
     Dosage: 1 TIME INJECTION ANNUALLY
     Dates: start: 20110601

REACTIONS (6)
  - COUGH [None]
  - RHINORRHOEA [None]
  - DIARRHOEA [None]
  - SINUSITIS [None]
  - SNEEZING [None]
  - HEADACHE [None]
